FAERS Safety Report 6982588-X (Version None)
Quarter: 2010Q3

REPORT INFORMATION
  Report Type: 
  Country: None (occurrence: None)
  Receive Date: 20100914
  Receipt Date: 20100227
  Transmission Date: 20110219
  Serious: Yes (Other)
  Sender: FDA-Public Use
  Company Number: US-PFIZER INC-2010025819

PATIENT
  Sex: Female

DRUGS (4)
  1. LYRICA [Suspect]
     Indication: CARPAL TUNNEL SYNDROME
     Dosage: 75 MG, 2X/DAY
     Route: 048
     Dates: start: 20100201, end: 20100225
  2. ZOCOR [Concomitant]
     Indication: BLOOD CHOLESTEROL INCREASED
     Dosage: UNK
  3. HYZAAR [Concomitant]
     Indication: HYPERTENSION
     Dosage: UNK
  4. TYLENOL [Concomitant]
     Indication: PAIN
     Dosage: UNK

REACTIONS (5)
  - LOCALISED OEDEMA [None]
  - MALAISE [None]
  - MOBILITY DECREASED [None]
  - OEDEMA MOUTH [None]
  - OEDEMA PERIPHERAL [None]
